FAERS Safety Report 16914395 (Version 1)
Quarter: 2019Q4

REPORT INFORMATION
  Report Type: Spontaneous
  Country: US (occurrence: US)
  Receive Date: 20191014
  Receipt Date: 20191014
  Transmission Date: 20200122
  Serious: Yes (Other)
  Sender: FDA-Public Use
  Company Number: US-SA-2019SA277443

PATIENT
  Age: 52 Year
  Sex: Male

DRUGS (3)
  1. LEFLUNOMIDE. [Suspect]
     Active Substance: LEFLUNOMIDE
  2. HYDROXYCHLOROQUINE SULFATE. [Suspect]
     Active Substance: HYDROXYCHLOROQUINE SULFATE
  3. METHAMPHETAMINE [METAMFETAMINE] [Concomitant]
     Active Substance: METHAMPHETAMINE
     Route: 042

REACTIONS (7)
  - Tachycardia [Unknown]
  - Empyema [Unknown]
  - Cough [Unknown]
  - Pulmonary cavitation [Recovering/Resolving]
  - Dyspnoea [Unknown]
  - Pneumothorax [Recovering/Resolving]
  - Chylothorax [Unknown]
